FAERS Safety Report 9284582 (Version 1)
Quarter: 2013Q2

REPORT INFORMATION
  Report Type: Spontaneous
  Country: GB (occurrence: GB)
  Receive Date: 20130512
  Receipt Date: 20130512
  Transmission Date: 20140414
  Serious: Yes (Other)
  Sender: FDA-Public Use
  Company Number: GB-TEVA-403472ISR

PATIENT
  Age: 71 Year
  Sex: Male

DRUGS (6)
  1. NITROFURANTOIN [Suspect]
     Indication: INFECTION
     Dosage: 2 DOSAGE FORMS DAILY;
     Route: 048
     Dates: start: 20130416, end: 20130417
  2. CEFALEXIN [Concomitant]
  3. CO-AMOXICLAV [Concomitant]
  4. PREDNISOLONE [Concomitant]
  5. BENDROFLUMETHIAZIDE [Concomitant]
  6. SIMVASTATIN [Concomitant]

REACTIONS (1)
  - Haemoptysis [Recovered/Resolved]
